FAERS Safety Report 24979372 (Version 1)
Quarter: 2025Q1

REPORT INFORMATION
  Report Type: Spontaneous
  Country: US (occurrence: US)
  Receive Date: 20250218
  Receipt Date: 20250218
  Transmission Date: 20250409
  Serious: No
  Sender: AZURITY PHARMACEUTICALS
  Company Number: US-AZURITY PHARMACEUTICALS, INC.-AZR202411-001179

PATIENT
  Sex: Female

DRUGS (1)
  1. FLEQSUVY [Suspect]
     Active Substance: BACLOFEN
     Indication: Product used for unknown indication
     Route: 048

REACTIONS (2)
  - Product dispensing error [Unknown]
  - Product packaging quantity issue [Unknown]
